FAERS Safety Report 9842306 (Version 2)
Quarter: 2014Q1

REPORT INFORMATION
  Report Type: Spontaneous
  Country: JP (occurrence: JP)
  Receive Date: 20140124
  Receipt Date: 20140210
  Transmission Date: 20141002
  Serious: Yes (Other)
  Sender: FDA-Public Use
  Company Number: JP-MERCK-1401JPN011200

PATIENT
  Age: 79 Year
  Sex: Male

DRUGS (10)
  1. GLACTIV [Suspect]
     Indication: TYPE 2 DIABETES MELLITUS
     Dosage: 50 MG, QD
     Route: 048
     Dates: start: 20110113
  2. GLIMICRON [Concomitant]
     Indication: TYPE 2 DIABETES MELLITUS
     Dosage: 80 MG, UNK
     Dates: start: 20101221, end: 20110112
  3. GLIMICRON [Concomitant]
     Dosage: 40 MG, UNK
     Dates: start: 20110113, end: 20110223
  4. GLIMICRON [Concomitant]
     Dosage: 80 MG, UNK
     Dates: start: 20110224, end: 20110706
  5. EUGLUCON [Concomitant]
     Dosage: UNK
     Dates: start: 20110707
  6. SIMVASTATIN [Concomitant]
     Dosage: UNK
     Dates: start: 20101221
  7. DIOVAN [Concomitant]
     Dosage: UNK
     Dates: start: 20100309
  8. URIEF [Concomitant]
     Dosage: UNK
     Dates: start: 20100126
  9. DETRUSITOL [Concomitant]
     Dosage: UNK
     Dates: start: 20100126
  10. LANSOPRAZOLE [Concomitant]
     Dosage: UNK
     Dates: start: 20100611

REACTIONS (1)
  - Angina pectoris [Recovered/Resolved]
